FAERS Safety Report 6866992-6 (Version None)
Quarter: 2010Q3

REPORT INFORMATION
  Report Type: 
  Country: None (occurrence: None)
  Receive Date: 20100722
  Receipt Date: 20100713
  Transmission Date: 20110219
  Serious: Yes (Hospitalization)
  Sender: FDA-Public Use
  Company Number: NL-ROCHE-715374

PATIENT
  Weight: 66 kg

DRUGS (4)
  1. CAPECITABINE [Suspect]
     Indication: GASTRIC CANCER
     Dosage: LAST DOSE PRIOR TO SAE 23 MAY 2010, ROUTE, FORM, DOSE, FREQUENCY AS PER PROTOCOL
     Route: 048
     Dates: start: 20100324
  2. EPIRUBICIN [Suspect]
     Indication: GASTRIC CANCER
     Dosage: LAST DOSE PRIOR TO SAE 23 MAY 2010, ROUTE, FORM, DOSE, FREQUENCY AS PER PROTOCOL
     Route: 042
     Dates: start: 20100324
  3. CISPLATIN [Suspect]
     Indication: GASTRIC CANCER
     Dosage: LAST DOSE PRIOR TO SAE 23 MAY 2010, ROUTE, FORM, DOSE, FREQUENCY AS PER PROTOCOL
     Route: 042
     Dates: start: 20100324
  4. BEHEPAN TABLETS [Concomitant]
     Route: 048

REACTIONS (1)
  - CYSTITIS HAEMORRHAGIC [None]
